FAERS Safety Report 24532024 (Version 1)
Quarter: 2024Q4

REPORT INFORMATION
  Report Type: Spontaneous
  Country: US (occurrence: US)
  Receive Date: 20241022
  Receipt Date: 20241022
  Transmission Date: 20250115
  Serious: No
  Sender: MERCK
  Company Number: US-MODERNATX-MOC20241009000021

PATIENT

DRUGS (1)
  1. KEYTRUDA [Suspect]
     Active Substance: PEMBROLIZUMAB
     Indication: Renal cell carcinoma stage III
     Dosage: UNK
     Dates: end: 2023

REACTIONS (1)
  - Immune system disorder [Unknown]
